FAERS Safety Report 6046357-X (Version None)
Quarter: 2009Q1

REPORT INFORMATION
  Report Type: 
  Country: None (occurrence: None)
  Receive Date: 20090122
  Receipt Date: 20090115
  Transmission Date: 20090719
  Serious: Yes (Other)
  Sender: FDA-Public Use
  Company Number: US-ASTRAZENECA-2009UW01315

PATIENT
  Age: 70 Year
  Sex: Female
  Weight: 66.7 kg

DRUGS (3)
  1. SYMBICORT [Suspect]
     Indication: ALLERGY TO CHEMICALS
     Dosage: 160/4.5 MCG, PRN INCREASED TO 2 PUFFS BID FOR SEVERAL MONTHS
     Route: 055
  2. SYMBICORT [Suspect]
     Indication: BRONCHOSPASM
     Dosage: 160/4.5 MCG, PRN INCREASED TO 2 PUFFS BID FOR SEVERAL MONTHS
     Route: 055
  3. SYMBICORT [Suspect]
     Indication: COUGH
     Dosage: 160/4.5 MCG, PRN INCREASED TO 2 PUFFS BID FOR SEVERAL MONTHS
     Route: 055

REACTIONS (2)
  - CORONARY ARTERY DISEASE [None]
  - TACHYCARDIA [None]
